FAERS Safety Report 4829283-0 (Version None)
Quarter: 2005Q4

REPORT INFORMATION
  Report Type: 
  Country: None (occurrence: None)
  Receive Date: 20051116
  Receipt Date: 20051011
  Transmission Date: 20060501
  Serious: Yes (Hospitalization)
  Sender: FDA-Public Use
  Company Number: JP-JPN-A20052439

PATIENT
  Age: 64 Year
  Sex: Female
  Weight: 50 kg

DRUGS (5)
  1. VALTREX [Suspect]
     Indication: HERPES ZOSTER
     Dosage: 1000MG THREE TIMES PER DAY
     Route: 048
     Dates: start: 20051003, end: 20051006
  2. CONIEL [Concomitant]
     Indication: HYPERTENSION
     Dosage: 1U PER DAY
     Route: 048
     Dates: start: 20030602
  3. LIPITOR [Concomitant]
     Indication: HYPERLIPIDAEMIA
     Dosage: 1U PER DAY
     Route: 048
     Dates: start: 20030610
  4. RIZE [Concomitant]
     Indication: PSYCHOSOMATIC DISEASE
     Dosage: 3U PER DAY
     Route: 048
     Dates: start: 19900213
  5. GASTER [Concomitant]
     Indication: GASTRITIS
     Dosage: 20MG PER DAY
     Route: 048
     Dates: start: 20031104

REACTIONS (6)
  - ANOREXIA [None]
  - BLOOD CREATININE INCREASED [None]
  - DIZZINESS [None]
  - MALAISE [None]
  - NAUSEA [None]
  - RENAL FAILURE ACUTE [None]
